FAERS Safety Report 4311524-X (Version None)
Quarter: 2004Q1

REPORT INFORMATION
  Report Type: 
  Country: None (occurrence: None)
  Receive Date: 20040303
  Receipt Date: 20040303
  Transmission Date: 20041129
  Serious: Yes (Hospitalization)
  Sender: FDA-Public Use
  Company Number: None

PATIENT
  Age: 55 Year
  Sex: Female

DRUGS (1)
  1. VANCOMYCIN [Suspect]
     Indication: INFECTION
     Dosage: IV
     Route: 042
     Dates: start: 20031030, end: 20031203

REACTIONS (2)
  - RASH PRURITIC [None]
  - THROMBOCYTOPENIA [None]
